FAERS Safety Report 13803569 (Version 1)
Quarter: 2017Q3

REPORT INFORMATION
  Report Type: Spontaneous
  Country: US (occurrence: US)
  Receive Date: 20170728
  Receipt Date: 20170728
  Transmission Date: 20171127
  Serious: Yes (Other)
  Sender: FDA-Public Use
  Company Number: US-TEVA-690606USA

PATIENT
  Age: 69 Year
  Sex: Female
  Weight: 66.74 kg

DRUGS (1)
  1. CARTIA XT [Suspect]
     Active Substance: DILTIAZEM HYDROCHLORIDE
     Indication: ARRHYTHMIA
     Route: 065

REACTIONS (5)
  - Arrhythmia [Unknown]
  - Drug ineffective [Unknown]
  - Product use in unapproved indication [Unknown]
  - Palpitations [Unknown]
  - Malaise [Unknown]

NARRATIVE: CASE EVENT DATE: 20160825
